FAERS Safety Report 15333516 (Version 2)
Quarter: 2020Q2

REPORT INFORMATION
  Report Type: Spontaneous
  Country: US (occurrence: US)
  Receive Date: 20180830
  Receipt Date: 20200615
  Transmission Date: 20200713
  Serious: Yes (Hospitalization, Other)
  Sender: FDA-Public Use
  Company Number: US-NAPPMUNDI-USA-2018-0144569

PATIENT
  Age: 57 Year
  Sex: Female

DRUGS (5)
  1. MORPHINE SULFATE (SIMILAR TO NDA 19-516) [Suspect]
     Active Substance: MORPHINE SULFATE
     Indication: PAIN
     Dosage: (60 MG) 1 TABLET, BID
     Route: 048
     Dates: start: 1996, end: 201808
  2. HYSINGLA ER [Suspect]
     Active Substance: HYDROCODONE BITARTRATE
     Indication: PAIN
     Dosage: (80MG) 1 TABLET, DAILY
     Route: 048
     Dates: start: 20180801
  3. MORPHINE [Suspect]
     Active Substance: MORPHINE
     Indication: PROCEDURAL PAIN
     Dosage: UNK
     Route: 042
     Dates: start: 2000, end: 2000
  4. HYDROCODONE BITARTRATE AND ACETAMINOPHEN [Suspect]
     Active Substance: ACETAMINOPHEN\HYDROCODONE BITARTRATE
     Indication: PAIN
     Dosage: (10MG/ 325MG) 1 TABLET, TID
     Route: 048
     Dates: start: 200008
  5. HYDROCODONE BITARTRATE AND ACETAMINOPHEN [Suspect]
     Active Substance: ACETAMINOPHEN\HYDROCODONE BITARTRATE
     Dosage: (10MG/ 325MG)1 TABLET, 6-8 TIMES DAILY, PRN
     Route: 048
     Dates: start: 1996, end: 200008

REACTIONS (10)
  - Headache [Not Recovered/Not Resolved]
  - Product dose omission [Recovered/Resolved]
  - Migraine [Recovered/Resolved]
  - Nausea [Not Recovered/Not Resolved]
  - Spinal operation [Unknown]
  - Intervertebral disc protrusion [Unknown]
  - Cerebrospinal fluid leakage [Recovered/Resolved]
  - Ulcer [Recovered/Resolved]
  - Abdominal pain [Not Recovered/Not Resolved]
  - Drug withdrawal syndrome [Unknown]

NARRATIVE: CASE EVENT DATE: 2000
